FAERS Safety Report 7554328-7 (Version None)
Quarter: 2011Q2

REPORT INFORMATION
  Report Type: 
  Country: None (occurrence: None)
  Receive Date: 20110617
  Receipt Date: 20110503
  Transmission Date: 20111010
  Serious: Yes (Other)
  Sender: FDA-Public Use
  Company Number: US-ROCHE-590156

PATIENT
  Sex: Female
  Weight: 81.2 kg

DRUGS (19)
  1. TOCILIZUMAB [Suspect]
     Route: 042
     Dates: start: 20080527
  2. TOCILIZUMAB [Suspect]
     Dosage: THERAPY TEMPORARILY INTERRUPTED.
     Route: 042
     Dates: end: 20080912
  3. METHOTREXATE [Concomitant]
     Route: 048
  4. VITAMIN D [Concomitant]
     Dosage: TDD REPORTED AS 50,000 UNITS.
     Dates: start: 20080105
  5. TOPROL-XL [Concomitant]
     Dates: start: 20030101
  6. VASOTEC [Concomitant]
     Dates: start: 20030101
  7. MULTI-VITAMIN [Concomitant]
     Dates: start: 19800101
  8. ZETIA [Concomitant]
     Dates: start: 20070912
  9. TOCILIZUMAB [Suspect]
     Indication: RHEUMATOID ARTHRITIS
     Dosage: DOSAGE FORM REPORTED AS VIAL.
     Route: 042
     Dates: start: 20040203
  10. TOCILIZUMAB [Suspect]
     Route: 042
     Dates: start: 20080715
  11. CALCIUM CARBONATE [Concomitant]
     Dates: start: 20050411
  12. PROCARDIN(DIPYRIDAMOLE) [Concomitant]
     Dosage: DRUG NAME REPORTED AS PROCARDIL XL.
     Dates: start: 20080108
  13. TOCILIZUMAB [Suspect]
     Route: 042
     Dates: start: 20080619
  14. TOCILIZUMAB [Suspect]
     Route: 042
     Dates: start: 20080814
  15. TOCILIZUMAB [Suspect]
     Route: 042
     Dates: start: 20090717
  16. LORTAB [Concomitant]
     Dates: start: 20030612
  17. LOTREL [Concomitant]
     Dates: start: 20080623
  18. TOCILIZUMAB [Suspect]
     Dosage: FORM: INFUSION. PATIENT WAS PREVIOSLY ENROLLED IN WA18062 STUDY.
     Route: 042
  19. HYDROCHLOROTHIAZIDE [Concomitant]
     Dates: start: 20070206

REACTIONS (1)
  - BREAST CANCER STAGE III [None]
